FAERS Safety Report 7999059-4 (Version None)
Quarter: 2011Q4

REPORT INFORMATION
  Report Type: 
  Country: None (occurrence: None)
  Receive Date: 20111221
  Receipt Date: 20111213
  Transmission Date: 20120403
  Serious: Yes (Hospitalization, Other)
  Sender: FDA-Public Use
  Company Number: PHHY2011JP105220

PATIENT
  Age: 65 Year
  Sex: Female

DRUGS (6)
  1. LAMISIL [Suspect]
     Indication: TINEA INFECTION
     Dosage: 125 MG, QD
     Route: 048
     Dates: start: 20111109, end: 20111122
  2. PREDNISOLONE [Concomitant]
     Dosage: 30 MG
     Route: 048
     Dates: start: 20111203
  3. SOLU-MEDROL [Concomitant]
     Dosage: 1000 MG
     Route: 042
     Dates: start: 20111130, end: 20111202
  4. OLOPATADINE HCL [Suspect]
     Dosage: 5 MG, QD
     Route: 048
     Dates: start: 20111109, end: 20111122
  5. PREDNISOLONE [Concomitant]
     Dosage: 40 MG
     Route: 048
     Dates: start: 20111203
  6. PREDNISOLONE [Concomitant]
     Dosage: 20 MG
     Route: 048
     Dates: start: 20111203

REACTIONS (5)
  - ALANINE AMINOTRANSFERASE INCREASED [None]
  - INTERSTITIAL LUNG DISEASE [None]
  - ASPARTATE AMINOTRANSFERASE INCREASED [None]
  - DYSPNOEA [None]
  - HEPATIC FUNCTION ABNORMAL [None]
